FAERS Safety Report 9970550 (Version 1)
Quarter: 2014Q1

REPORT INFORMATION
  Report Type: Report from Study
  Country: US (occurrence: US)
  Receive Date: 20140306
  Receipt Date: 20140306
  Transmission Date: 20141002
  Serious: No
  Sender: FDA-Public Use
  Company Number: US-ABBVIE-13P-163-1149141-00

PATIENT
  Sex: Female

DRUGS (4)
  1. HUMIRA [Suspect]
     Indication: PRODUCT USED FOR UNKNOWN INDICATION
     Dosage: DAY 1
     Route: 058
     Dates: start: 20130910, end: 20130910
  2. HUMIRA [Suspect]
     Dosage: DAY 2
     Dates: start: 20130911, end: 20130911
  3. HUMIRA [Suspect]
     Dosage: DAY 15
  4. HUMIRA [Suspect]

REACTIONS (2)
  - Injection site bruising [Unknown]
  - Injection site pain [Unknown]
